FAERS Safety Report 7821475-1 (Version None)
Quarter: 2011Q4

REPORT INFORMATION
  Report Type: 
  Country: None (occurrence: None)
  Receive Date: 20111018
  Receipt Date: 20110615
  Transmission Date: 20120403
  Serious: No
  Sender: FDA-Public Use
  Company Number: US-ASTRAZENECA-2011SE36527

PATIENT
  Sex: Male

DRUGS (2)
  1. PROAIR HFA [Concomitant]
     Route: 065
  2. SYMBICORT [Suspect]
     Route: 055
     Dates: start: 20110609

REACTIONS (2)
  - EYE HAEMORRHAGE [None]
  - EYE DISORDER [None]
